FAERS Safety Report 15157322 (Version 1)
Quarter: 2018Q3

REPORT INFORMATION
  Report Type: Spontaneous
  Country: JP (occurrence: JP)
  Receive Date: 20180718
  Receipt Date: 20180718
  Transmission Date: 20181010
  Serious: Yes (Hospitalization)
  Sender: FDA-Public Use
  Company Number: JP-TAKEDA-2018TJP018403

PATIENT
  Age: 70 Year
  Sex: Male

DRUGS (5)
  1. LANSAP [Suspect]
     Active Substance: AMOXICILLIN\CLARITHROMYCIN\LANSOPRAZOLE
     Indication: HELICOBACTER INFECTION
     Dosage: 1 DF, UNK
     Route: 048
     Dates: start: 20180622, end: 20180629
  2. KAKKONTO                           /07985901/ [Concomitant]
     Active Substance: HERBALS
     Dosage: UNK
     Route: 048
     Dates: start: 20180618
  3. ZAFATEK [Concomitant]
     Active Substance: TRELAGLIPTIN SUCCINATE
     Dosage: UNK
     Route: 048
  4. PITAVASTATIN CALCIUM [Concomitant]
     Active Substance: PITAVASTATIN CALCIUM
     Dosage: UNK
     Route: 048
  5. NEXIUM [Concomitant]
     Active Substance: ESOMEPRAZOLE MAGNESIUM
     Dosage: UNK
     Route: 048
     Dates: start: 20180606

REACTIONS (2)
  - Condition aggravated [Unknown]
  - Chronic hepatitis [Unknown]

NARRATIVE: CASE EVENT DATE: 20180703
